FAERS Safety Report 11121505 (Version 1)
Quarter: 2015Q2

REPORT INFORMATION
  Report Type: Report from Study
  Country: GB (occurrence: GB)
  Receive Date: 20150519
  Receipt Date: 20150519
  Transmission Date: 20150821
  Serious: Yes (Hospitalization)
  Sender: FDA-Public Use
  Company Number: GB-SA-2015SA065288

PATIENT
  Weight: 69 kg

DRUGS (1)
  1. CABAZITAXEL [Suspect]
     Active Substance: CABAZITAXEL
     Indication: PROSTATE CANCER METASTATIC
     Route: 065
     Dates: start: 20130118, end: 20130118

REACTIONS (4)
  - Hypokalaemia [Recovered/Resolved]
  - Decreased appetite [Recovered/Resolved]
  - Neutropenic infection [Recovered/Resolved]
  - Urinary tract infection [Recovered/Resolved]

NARRATIVE: CASE EVENT DATE: 20130124
